FAERS Safety Report 24566850 (Version 1)
Quarter: 2024Q4

REPORT INFORMATION
  Report Type: Spontaneous
  Country: FR (occurrence: FR)
  Receive Date: 20241030
  Receipt Date: 20241030
  Transmission Date: 20250114
  Serious: Yes (Other)
  Sender: MERCK
  Company Number: FR-AFSSAPS-NC2024001279

PATIENT
  Age: 75 Year
  Sex: Male
  Weight: 66 kg

DRUGS (2)
  1. BRIDION [Suspect]
     Active Substance: SUGAMMADEX
     Indication: Inguinal hernia
     Dosage: NO, ADMINISTERED
     Route: 042
  2. ISOPROTERENOL HYDROCHLORIDE [Suspect]
     Active Substance: ISOPROTERENOL HYDROCHLORIDE
     Indication: Medication error
     Dosage: NO, SPECIFIED
     Route: 042
     Dates: start: 20240905, end: 20240905

REACTIONS (4)
  - Tachycardia [Recovered/Resolved]
  - Wrong product administered [Recovered/Resolved]
  - Product packaging confusion [Recovered/Resolved]
  - Product appearance confusion [Recovered/Resolved]

NARRATIVE: CASE EVENT DATE: 20240505
